FAERS Safety Report 18347467 (Version 1)
Quarter: 2020Q4

REPORT INFORMATION
  Report Type: Spontaneous
  Country: DE (occurrence: DE)
  Receive Date: 20201006
  Receipt Date: 20201006
  Transmission Date: 20210114
  Serious: Yes (Hospitalization)
  Sender: FDA-Public Use
  Company Number: NVSC2020DE263474

PATIENT
  Age: 24 Month
  Sex: Male
  Weight: 13 kg

DRUGS (2)
  1. AMANTADINE. [Suspect]
     Active Substance: AMANTADINE HYDROCHLORIDE
     Indication: VIRAL INFECTION
     Dosage: 84 MG, QD (DAILY DOSE: 84 MG MILLGRAM(S) EVERY DAYS) (ABGEF?LLT DURCH APO)
     Route: 048
     Dates: start: 20190612, end: 20190612
  2. LEVETIRACETAM. [Concomitant]
     Active Substance: LEVETIRACETAM
     Indication: EPILEPSY
     Dosage: UNK (1 BTL.)
     Route: 048

REACTIONS (4)
  - Wrong dose [Unknown]
  - Accidental overdose [Unknown]
  - Product dispensing error [Unknown]
  - Product packaging quantity issue [Unknown]

NARRATIVE: CASE EVENT DATE: 20190612
